FAERS Safety Report 9297259 (Version 1)
Quarter: 2013Q2

REPORT INFORMATION
  Report Type: Spontaneous
  Country: US (occurrence: US)
  Receive Date: 20130520
  Receipt Date: 20130520
  Transmission Date: 20140414
  Serious: Yes (Other)
  Sender: FDA-Public Use
  Company Number: US-PFIZER INC-2012299117

PATIENT
  Age: 63 Year
  Sex: Female
  Weight: 90.7 kg

DRUGS (3)
  1. NEURONTIN [Suspect]
     Indication: RESTLESS LEGS SYNDROME
     Dosage: 600 MG, 3X/DAY
  2. METFORMIN HCL [Suspect]
     Indication: DIABETES MELLITUS
     Dosage: UNK
  3. EFFEXOR XR [Suspect]
     Indication: MAJOR DEPRESSION
     Dosage: 225 MG (ONE CAPSULE OF 150 MG AND ONE CAPSULE OF 75 MG DAILY IN MORNING), 1X/DAY

REACTIONS (4)
  - Parkinson^s disease [Unknown]
  - Glycosylated haemoglobin decreased [Unknown]
  - Drug ineffective for unapproved indication [Unknown]
  - Off label use [Not Recovered/Not Resolved]
